FAERS Safety Report 25273210 (Version 1)
Quarter: 2025Q2

REPORT INFORMATION
  Report Type: Spontaneous
  Country: CN (occurrence: CN)
  Receive Date: 20250506
  Receipt Date: 20250506
  Transmission Date: 20250716
  Serious: Yes (Life-Threatening, Hospitalization)
  Sender: AMGEN
  Company Number: CN-AMGEN-CHNSP2025087748

PATIENT
  Age: 5 Year
  Sex: Male

DRUGS (1)
  1. BLINCYTO [Suspect]
     Active Substance: BLINATUMOMAB
     Indication: Acute lymphocytic leukaemia
     Dosage: 35 MICROGRAM, QD, ^VD^ DRIP (15 UG/M2 PI=24H INTRAVENOUS INFUSION)
     Route: 040
     Dates: start: 20250417, end: 20250417

REACTIONS (2)
  - Myelosuppression [Not Recovered/Not Resolved]
  - Pyrexia [Not Recovered/Not Resolved]

NARRATIVE: CASE EVENT DATE: 20250418
